FAERS Safety Report 4584018-4 (Version None)
Quarter: 2005Q1

REPORT INFORMATION
  Report Type: 
  Country: None (occurrence: None)
  Receive Date: 20050125
  Receipt Date: 20041004
  Transmission Date: 20050727
  Serious: No
  Sender: FDA-Public Use
  Company Number: USA041080087

PATIENT
  Age: 76 Year
  Sex: Female
  Weight: 64 kg

DRUGS (4)
  1. FORTEO [Suspect]
     Indication: OSTEOPOROSIS
     Dosage: 20 UG/1 IN THE EVENING
     Dates: start: 20040601
  2. VICODIN [Concomitant]
  3. OXYCONTIN (OXYCODONE HDYROCHLORIDE) [Concomitant]
  4. MORPHINE [Concomitant]

REACTIONS (6)
  - ABDOMINAL PAIN UPPER [None]
  - BLOOD CALCIUM INCREASED [None]
  - DYSURIA [None]
  - FLUSHING [None]
  - LIVER DISORDER [None]
  - PRURITUS [None]
